FAERS Safety Report 8284648-2 (Version None)
Quarter: 2012Q2

REPORT INFORMATION
  Report Type: 
  Country: None (occurrence: None)
  Receive Date: 20120413
  Receipt Date: 20110422
  Transmission Date: 20120825
  Serious: Yes (Hospitalization)
  Sender: FDA-Public Use
  Company Number: US-ASTRAZENECA-2010SE37656

PATIENT
  Age: 48 Year
  Sex: Female

DRUGS (2)
  1. NEXIUM [Suspect]
     Route: 048
  2. ZANTAC [Concomitant]

REACTIONS (11)
  - APHAGIA [None]
  - MULTIPLE ALLERGIES [None]
  - DYSPHAGIA [None]
  - VOMITING [None]
  - SPEECH DISORDER [None]
  - ABDOMINAL PAIN UPPER [None]
  - ASTHMA [None]
  - DRUG DOSE OMISSION [None]
  - DYSPEPSIA [None]
  - COUGH [None]
  - CHRONIC OBSTRUCTIVE PULMONARY DISEASE [None]
